FAERS Safety Report 21674606 (Version 1)
Quarter: 2022Q4

REPORT INFORMATION
  Report Type: Spontaneous
  Country: DK (occurrence: DK)
  Receive Date: 20221202
  Receipt Date: 20221202
  Transmission Date: 20230112
  Serious: Yes (Hospitalization, Disabling)
  Sender: FDA-Public Use
  Company Number: None

PATIENT
  Age: 54 Year
  Sex: Female
  Weight: 72 kg

DRUGS (2)
  1. METHOTREXATE [Suspect]
     Active Substance: METHOTREXATE
     Indication: Seronegative arthritis
     Dosage: STRENGTH: 2.5 MG DOSAGE: START DOSE 10 MG ONCE EVERY WEEK, INCREASED TO 15 MG AFTER 14 DAYS
     Route: 048
     Dates: start: 20201006, end: 20201102
  2. PREDNISOLONE [Concomitant]
     Active Substance: PREDNISOLONE
     Indication: Seronegative arthritis
     Dates: start: 20201006, end: 20201015

REACTIONS (15)
  - Herpes zoster meningitis [Recovered/Resolved]
  - Herpes zoster [Recovered/Resolved]
  - Pain [Recovered/Resolved]
  - Headache [Not Recovered/Not Resolved]
  - Paraesthesia [Not Recovered/Not Resolved]
  - Pustule [Recovered/Resolved]
  - Facial pain [Not Recovered/Not Resolved]
  - Pyrexia [Recovered/Resolved]
  - Photophobia [Not Recovered/Not Resolved]
  - Hyperacusis [Not Recovered/Not Resolved]
  - Fatigue [Unknown]
  - Neuralgia [Not Recovered/Not Resolved]
  - Burning sensation [Recovered/Resolved]
  - Neck pain [Unknown]
  - Sensory disturbance [Unknown]

NARRATIVE: CASE EVENT DATE: 20200101
